FAERS Safety Report 7980726-3 (Version None)
Quarter: 2011Q4

REPORT INFORMATION
  Report Type: 
  Country: None (occurrence: None)
  Receive Date: 20111214
  Receipt Date: 20111207
  Transmission Date: 20120403
  Serious: Yes (Death)
  Sender: FDA-Public Use
  Company Number: NO-BAXTER-2011BH039087

PATIENT

DRUGS (3)
  1. MESNA [Concomitant]
     Indication: PRODUCT USED FOR UNKNOWN INDICATION
     Route: 042
  2. DOXORUBICIN HCL [Suspect]
     Indication: SARCOMA
     Route: 042
  3. IFOSFAMIDE [Suspect]
     Indication: SARCOMA
     Route: 042

REACTIONS (1)
  - NEPHROPATHY TOXIC [None]
